FAERS Safety Report 16340855 (Version 1)
Quarter: 2019Q2

REPORT INFORMATION
  Report Type: Spontaneous
  Country: US (occurrence: US)
  Receive Date: 20190522
  Receipt Date: 20190522
  Transmission Date: 20190711
  Serious: Yes (Other)
  Sender: FDA-Public Use
  Company Number: US-CONCORDIA PHARMACEUTICALS INC.-GSH201905-001420

PATIENT
  Age: 57 Year
  Sex: Female

DRUGS (12)
  1. HYDROXYCHLOROQUINE 200 MG TABLET [Suspect]
     Active Substance: HYDROXYCHLOROQUINE
     Indication: TUBULOINTERSTITIAL NEPHRITIS
     Dosage: FROM DAY 1
     Route: 065
  2. PREDNISONE. [Suspect]
     Active Substance: PREDNISONE
     Dosage: FROM DAY 30
     Route: 065
  3. PREDNISONE. [Suspect]
     Active Substance: PREDNISONE
     Dosage: FROM DAY 60
     Route: 065
  4. AZATHIOPRINE. [Suspect]
     Active Substance: AZATHIOPRINE
     Indication: TUBULOINTERSTITIAL NEPHRITIS
     Dosage: STARTING FROM DAY 30
     Route: 065
  5. AMLLORLDE [Concomitant]
     Indication: TUBULOINTERSTITIAL NEPHRITIS
  6. PREDNISONE. [Suspect]
     Active Substance: PREDNISONE
     Dosage: FROM DAY 90
     Route: 065
  7. CITALOPRAM [Concomitant]
     Active Substance: CITALOPRAM HYDROBROMIDE
     Indication: DEPRESSION
  8. SUMATRIPTAN. [Concomitant]
     Active Substance: SUMATRIPTAN
     Indication: MIGRAINE
  9. SODIUM BICARBONATE. [Concomitant]
     Active Substance: SODIUM BICARBONATE
     Indication: TUBULOINTERSTITIAL NEPHRITIS
  10. PREDNISONE. [Suspect]
     Active Substance: PREDNISONE
     Indication: TUBULOINTERSTITIAL NEPHRITIS
     Dosage: FROM DAY 1
     Route: 065
  11. POTASSIUM CHLORIDE. [Concomitant]
     Active Substance: POTASSIUM CHLORIDE
     Indication: TUBULOINTERSTITIAL NEPHRITIS
  12. AZATHIOPRINE. [Suspect]
     Active Substance: AZATHIOPRINE
     Dosage: STARTING FROM DAY 60
     Route: 065

REACTIONS (6)
  - Lipodystrophy acquired [Unknown]
  - Therapeutic response decreased [Unknown]
  - Oedema [Unknown]
  - Chronic kidney disease [Recovering/Resolving]
  - Treatment noncompliance [Unknown]
  - Off label use [Unknown]
